FAERS Safety Report 9416906 (Version 2)
Quarter: 2013Q3

REPORT INFORMATION
  Report Type: Spontaneous
  Country: JP (occurrence: JP)
  Receive Date: 20130724
  Receipt Date: 20130731
  Transmission Date: 20140515
  Serious: Yes (Other)
  Sender: FDA-Public Use
  Company Number: JP-BAYER-2013-087682

PATIENT
  Age: 70 Year
  Sex: Male

DRUGS (9)
  1. NEXAVAR [Suspect]
     Indication: HEPATOCELLULAR CARCINOMA
     Dosage: DAILY DOSE 800 MG
     Route: 048
     Dates: start: 201105
  2. NEXAVAR [Suspect]
     Indication: HEPATOCELLULAR CARCINOMA
     Dosage: DAILY DOSE 400 MG
     Route: 048
  3. NEXAVAR [Suspect]
     Indication: HEPATOCELLULAR CARCINOMA
     Dosage: DAILY DOSE 200 MG
     Route: 048
  4. NEXAVAR [Suspect]
     Indication: HEPATOCELLULAR CARCINOMA
     Dosage: DAILY DOSE 400 MG
     Route: 048
  5. NEXAVAR [Suspect]
     Indication: HEPATOCELLULAR CARCINOMA
     Dosage: DAILY DOSE 400 MG
     Route: 048
     Dates: start: 201208
  6. NEXAVAR [Suspect]
     Indication: HEPATOCELLULAR CARCINOMA
     Dosage: DAILY DOSE 800 MG
     Route: 048
  7. NEXAVAR [Suspect]
     Indication: HEPATOCELLULAR CARCINOMA
     Dosage: DAILY DOSE 600 MG
     Route: 048
  8. CELESTAMINE [Concomitant]
     Route: 048
  9. CELESTAMINE [Concomitant]
     Dosage: UNK
     Route: 048
     Dates: start: 201208

REACTIONS (7)
  - Pancytopenia [None]
  - Metastases to lung [Recovering/Resolving]
  - Palmar-plantar erythrodysaesthesia syndrome [None]
  - Liver disorder [None]
  - Pyrexia [None]
  - Rash [None]
  - Oral mucosal erythema [None]
